FAERS Safety Report 13566291 (Version 1)
Quarter: 2017Q2

REPORT INFORMATION
  Report Type: Spontaneous
  Country: US (occurrence: US)
  Receive Date: 20170521
  Receipt Date: 20170521
  Transmission Date: 20170830
  Serious: Yes (Hospitalization, Other)
  Sender: FDA-Public Use
  Company Number: US-PIRAMAL ENTERPRISES LTD-2017-PEL-000755

PATIENT

DRUGS (2)
  1. GABAPENTIN. [Concomitant]
     Active Substance: GABAPENTIN
     Indication: NEURALGIA
  2. SEVOFLURANE, USP [Suspect]
     Active Substance: SEVOFLURANE
     Indication: SEDATION
     Dosage: UNK
     Route: 065

REACTIONS (5)
  - Pulmonary alveolar haemorrhage [Recovered/Resolved]
  - Hypoxia [Recovered/Resolved]
  - Dyspnoea [Recovered/Resolved]
  - Non-cardiac chest pain [Recovered/Resolved]
  - Condition aggravated [Recovered/Resolved]
